FAERS Safety Report 12452559 (Version 2)
Quarter: 2016Q2

REPORT INFORMATION
  Report Type: Spontaneous
  Country: FR (occurrence: FR)
  Receive Date: 20160609
  Receipt Date: 20160627
  Transmission Date: 20160815
  Serious: Yes (Hospitalization)
  Sender: FDA-Public Use
  Company Number: FR-TEVA-665873ISR

PATIENT
  Age: 59 Year
  Sex: Male

DRUGS (5)
  1. OXALIPLATINE TEVA [Suspect]
     Active Substance: OXALIPLATIN
     Indication: COLORECTAL ADENOCARCINOMA
     Dosage: FOLFOX (FLUOROURACILE, OXALIPLATIN, FOLINIC ACID) AVASTIN PROTOCOL, 18 INJECTIONS
     Dates: start: 20150522, end: 20160420
  2. FLUOROURACILE ACCORD 50 MG/ML [Suspect]
     Active Substance: FLUOROURACIL
     Dosage: FOLFOX AVASTIN PROTOCOL, 18 INJECTIONS
     Route: 041
     Dates: start: 20150522, end: 20160420
  3. FOLINIC ACID [Concomitant]
     Active Substance: LEUCOVORIN
     Dosage: FOLFOX AVASTIN PROTOCOL, 18 INJECTIONS
     Dates: start: 20150522, end: 20160420
  4. AVASTIN [Suspect]
     Active Substance: BEVACIZUMAB
     Indication: COLORECTAL ADENOCARCINOMA
     Dosage: FOLFOX AVASTIN PROTOCOL, 18 INJECTIONS
     Route: 041
     Dates: start: 20150522, end: 20160420
  5. FLUOROURACILE ACCORD 50 MG/ML [Suspect]
     Active Substance: FLUOROURACIL
     Indication: COLORECTAL ADENOCARCINOMA
     Dosage: FOLFOX AVASTIN PROTOCOL, 18 INJECTIONS
     Route: 040
     Dates: start: 20150522, end: 20160420

REACTIONS (4)
  - Condition aggravated [Not Recovered/Not Resolved]
  - Ejection fraction decreased [Not Recovered/Not Resolved]
  - Congestive cardiomyopathy [Unknown]
  - Cardiac failure [Not Recovered/Not Resolved]

NARRATIVE: CASE EVENT DATE: 201605
